FAERS Safety Report 7594095-4 (Version None)
Quarter: 2011Q3

REPORT INFORMATION
  Report Type: 
  Country: None (occurrence: None)
  Receive Date: 20110706
  Receipt Date: 20110629
  Transmission Date: 20111222
  Serious: Yes (Other)
  Sender: FDA-Public Use
  Company Number: US-BAYER-2011-054339

PATIENT
  Age: 25 Year
  Sex: Female
  Weight: 59 kg

DRUGS (2)
  1. ACETAMINOPHEN [Concomitant]
  2. MULTI-VITAMINS [Suspect]
     Dosage: 1 DF, QD WITH FOOD
     Route: 048
     Dates: start: 20110611, end: 20110613

REACTIONS (1)
  - CHOKING [None]
